FAERS Safety Report 16899013 (Version 1)
Quarter: 2019Q4

REPORT INFORMATION
  Report Type: Spontaneous
  Country: US (occurrence: US)
  Receive Date: 20191009
  Receipt Date: 20191009
  Transmission Date: 20200122
  Serious: No
  Sender: FDA-Public Use
  Company Number: US-PFIZER INC-2019433860

PATIENT
  Age: 47 Year
  Sex: Female
  Weight: 58.97 kg

DRUGS (1)
  1. ADVIL LIQUI-GELS [Suspect]
     Active Substance: IBUPROFEN
     Indication: FATIGUE
     Dosage: UNK (AFTER A LONG RUN AND MAYBE ANOTHER 2 A FEW HOURS LATER/2 OR 4 LIQUIGELS MINIS BUT USUALLY 2)
     Route: 048

REACTIONS (3)
  - Intentional product misuse [Unknown]
  - Malaise [Not Recovered/Not Resolved]
  - Nausea [Not Recovered/Not Resolved]
